FAERS Safety Report 9223251 (Version 1)
Quarter: 2013Q2

REPORT INFORMATION
  Report Type: Spontaneous
  Country: US (occurrence: US)
  Receive Date: 20130410
  Receipt Date: 20130410
  Transmission Date: 20140414
  Serious: No
  Sender: FDA-Public Use
  Company Number: US-TEVA-397096USA

PATIENT
  Sex: Female

DRUGS (3)
  1. PROAIR HFA [Suspect]
     Indication: BRONCHOSPASM
  2. PROAIR HFA [Suspect]
     Indication: DYSPNOEA
  3. PROAIR HFA [Suspect]
     Indication: ASTHMA

REACTIONS (2)
  - Cough [Unknown]
  - Sensation of foreign body [Unknown]
